FAERS Safety Report 4617004-6 (Version None)
Quarter: 2005Q2

REPORT INFORMATION
  Report Type: 
  Country: None (occurrence: None)
  Receive Date: 20050311
  Receipt Date: 20041213
  Transmission Date: 20051028
  Serious: No
  Sender: FDA-Public Use
  Company Number: 2004-00922

PATIENT
  Age: 55 Year
  Sex: Male
  Weight: 77.6 kg

DRUGS (1)
  1. VELCADE [Suspect]
     Indication: MULTIPLE MYELOMA
     Dosage: 2.40 MG, IV BOLUS
     Route: 040
     Dates: end: 20041209

REACTIONS (1)
  - PAIN IN JAW [None]
